FAERS Safety Report 4523897-3 (Version None)
Quarter: 2004Q4

REPORT INFORMATION
  Report Type: 
  Country: None (occurrence: None)
  Receive Date: 20041116
  Receipt Date: 20040802
  Transmission Date: 20050328
  Serious: No
  Sender: FDA-Public Use
  Company Number: S04-USA-05765-01

PATIENT
  Age: 40 Year
  Sex: Male

DRUGS (4)
  1. NAMENDA [Suspect]
     Indication: HEADACHE
     Dosage: 5 MG QD PO
     Route: 048
     Dates: start: 20040730
  2. NAMENDA [Suspect]
     Indication: NERVOUS SYSTEM DISORDER
     Dosage: 5 MG QD PO
     Route: 048
     Dates: start: 20040730
  3. CORGARD [Concomitant]
  4. NEXIUM [Concomitant]

REACTIONS (1)
  - BACK PAIN [None]
